FAERS Safety Report 13742462 (Version 3)
Quarter: 2017Q3

REPORT INFORMATION
  Report Type: Spontaneous
  Country: JP (occurrence: JP)
  Receive Date: 20170711
  Receipt Date: 20170831
  Transmission Date: 20171127
  Serious: Yes (Other)
  Sender: FDA-Public Use
  Company Number: JP-TEVA-786320ROM

PATIENT
  Age: 66 Year
  Sex: Male

DRUGS (1)
  1. RISEDRONATE SODIUM - BP [Suspect]
     Active Substance: RISEDRONATE SODIUM
     Indication: OSTEITIS DEFORMANS
     Dosage: 17.5 MILLIGRAM DAILY;
     Route: 048

REACTIONS (3)
  - Osteitis deformans [Unknown]
  - Gastric ulcer haemorrhage [Recovering/Resolving]
  - Faeces discoloured [Recovering/Resolving]
